FAERS Safety Report 5839122-7 (Version None)
Quarter: 2008Q3

REPORT INFORMATION
  Report Type: 
  Country: None (occurrence: None)
  Receive Date: 20080808
  Receipt Date: 20080728
  Transmission Date: 20090109
  Serious: Yes (Other)
  Sender: FDA-Public Use
  Company Number: US-PFIZER INC-2008047703

PATIENT
  Age: 64 Year
  Sex: Male
  Weight: 72.6 kg

DRUGS (6)
  1. VIAGRA [Suspect]
     Indication: ERECTILE DYSFUNCTION
  2. ASPIRIN [Concomitant]
  3. L-ARGININE/MENTHOL [Concomitant]
  4. FISH OIL [Concomitant]
  5. CALCIUM CITRATE [Concomitant]
  6. MAGNESIUM OXIDE [Concomitant]

REACTIONS (2)
  - MACULAR OEDEMA [None]
  - RETINAL VEIN OCCLUSION [None]
